FAERS Safety Report 4572205-0 (Version None)
Quarter: 2005Q1

REPORT INFORMATION
  Report Type: 
  Country: None (occurrence: None)
  Receive Date: 20050203
  Receipt Date: 20050119
  Transmission Date: 20050727
  Serious: Yes (Death)
  Sender: FDA-Public Use
  Company Number: MEDI-0002754

PATIENT
  Age: 39 Day
  Sex: Female
  Weight: 3.01 kg

DRUGS (3)
  1. SYNAGIS [Suspect]
     Indication: ANTIVIRAL PROPHYLAXIS
     Dosage: 1 IN 30 D, INTRAMUSCULAR
     Route: 030
     Dates: start: 20041215, end: 20041215
  2. FUROSEMIDE [Concomitant]
  3. LANACORDIN (DIGOXIN) [Concomitant]

REACTIONS (15)
  - CARDIAC DISORDER [None]
  - CARDIAC FAILURE [None]
  - CARDIAC MURMUR [None]
  - CARDIO-RESPIRATORY ARREST [None]
  - CONJUNCTIVITIS [None]
  - CYANOSIS [None]
  - DIARRHOEA [None]
  - GENERAL PHYSICAL HEALTH DETERIORATION [None]
  - INTERCOSTAL RETRACTION [None]
  - LIP DRY [None]
  - LIVER PALPABLE SUBCOSTAL [None]
  - RENAL FAILURE [None]
  - RESPIRATORY FAILURE [None]
  - TACHYPNOEA [None]
  - VOMITING [None]
